FAERS Safety Report 4654463-7 (Version None)
Quarter: 2005Q2

REPORT INFORMATION
  Report Type: 
  Country: None (occurrence: None)
  Receive Date: 20050404
  Receipt Date: 20050106
  Transmission Date: 20051028
  Serious: No
  Sender: FDA-Public Use
  Company Number: USA050187705

PATIENT
  Age: 72 Year
  Sex: Female
  Weight: 54 kg

DRUGS (9)
  1. CYMBALTA [Suspect]
     Indication: DEPRESSION
     Dosage: 90 MG AT BEDTIME
     Dates: start: 20040801
  2. CORGARD [Concomitant]
  3. LANOXIN (DIGOXIN STEULI) [Concomitant]
  4. SYNTHROID [Concomitant]
  5. CYTOMEL [Concomitant]
  6. PREMARIN [Concomitant]
  7. MAXZIDE [Concomitant]
  8. NEXIUM [Concomitant]
  9. DEXEDRINE [Concomitant]

REACTIONS (8)
  - ABDOMINAL DISTENSION [None]
  - ABNORMAL BEHAVIOUR [None]
  - DIARRHOEA [None]
  - EMOTIONAL DISTRESS [None]
  - FEELING ABNORMAL [None]
  - HYPERHIDROSIS [None]
  - PRESCRIBED OVERDOSE [None]
  - WEIGHT INCREASED [None]
